FAERS Safety Report 5649441-5 (Version None)
Quarter: 2008Q1

REPORT INFORMATION
  Report Type: 
  Country: None (occurrence: None)
  Receive Date: 20080304
  Receipt Date: 20080220
  Transmission Date: 20080703
  Serious: Yes (Hospitalization)
  Sender: FDA-Public Use
  Company Number: AR-BAYER-200712420GDS

PATIENT
  Age: 67 Year
  Sex: Male
  Weight: 64 kg

DRUGS (16)
  1. SORAFENIB [Suspect]
     Indication: NON-SMALL CELL LUNG CANCER
     Dosage: TOTAL DAILY DOSE: 800 MG
     Route: 048
     Dates: start: 20070405, end: 20070413
  2. CARBOPLATIN [Suspect]
     Indication: NON-SMALL CELL LUNG CANCER
     Route: 042
     Dates: start: 20070404, end: 20070404
  3. PACLITAXEL [Suspect]
     Indication: NON-SMALL CELL LUNG CANCER
     Route: 042
     Dates: start: 20070425, end: 20070425
  4. PACLITAXEL [Suspect]
     Route: 042
     Dates: start: 20070404, end: 20070404
  5. TEOSONA [Concomitant]
     Indication: CHRONIC OBSTRUCTIVE PULMONARY DISEASE
     Route: 048
     Dates: start: 20070306, end: 20070425
  6. ALBUTEROL [Concomitant]
     Indication: CHRONIC OBSTRUCTIVE PULMONARY DISEASE
     Route: 048
     Dates: start: 20070306, end: 20070425
  7. CODELASA [Concomitant]
     Indication: COUGH
     Route: 048
     Dates: start: 20070319, end: 20070418
  8. DEXAMETHASONE TAB [Concomitant]
     Indication: PALMAR-PLANTAR ERYTHRODYSAESTHESIA SYNDROME
     Route: 048
     Dates: start: 20070316, end: 20070425
  9. TAURAL [Concomitant]
     Indication: PROPHYLAXIS
     Route: 042
     Dates: start: 20070425, end: 20070426
  10. TAURAL [Concomitant]
     Route: 048
     Dates: start: 20070316, end: 20070426
  11. RELIVERAN [Concomitant]
     Indication: NAUSEA
     Route: 048
     Dates: start: 20070319
  12. IPRATROPIUM BROMIDE [Concomitant]
     Indication: CHRONIC OBSTRUCTIVE PULMONARY DISEASE
     Route: 055
     Dates: start: 20070426
  13. UNASYNA [Concomitant]
     Indication: INFECTION PROPHYLAXIS
     Route: 042
     Dates: start: 20070425, end: 20070427
  14. HEPARIN [Concomitant]
     Indication: THROMBOSIS PROPHYLAXIS
     Route: 042
     Dates: start: 20070426, end: 20070429
  15. THEOPHYLLINE [Concomitant]
     Indication: CHRONIC OBSTRUCTIVE PULMONARY DISEASE
     Route: 042
     Dates: start: 20070428
  16. METHYLPREDNISOLONE [Concomitant]
     Indication: ALLERGY PROPHYLAXIS
     Route: 042
     Dates: start: 20070428

REACTIONS (3)
  - ANAPHYLACTIC REACTION [None]
  - PALMAR-PLANTAR ERYTHRODYSAESTHESIA SYNDROME [None]
  - RASH [None]
